FAERS Safety Report 5421153-2 (Version None)
Quarter: 2007Q3

REPORT INFORMATION
  Report Type: 
  Country: None (occurrence: None)
  Receive Date: 20070816
  Receipt Date: 20070804
  Transmission Date: 20080115
  Serious: Yes (Other)
  Sender: FDA-Public Use
  Company Number: 2007326885

PATIENT
  Age: 26 Year
  Sex: Female
  Weight: 61.2 kg

DRUGS (4)
  1. BENADRYL [Suspect]
  2. CHANTIX [Suspect]
     Indication: SMOKING CESSATION THERAPY
     Dosage: .5MG ONCE QD, .5MG 2X QD, 1.0MG 2X QD
     Dates: start: 20070521, end: 20070701
  3. NEURONTIN [Concomitant]
  4. ZOLOFT [Concomitant]

REACTIONS (4)
  - DIZZINESS [None]
  - DRUG INTOLERANCE [None]
  - PYREXIA [None]
  - RESPIRATORY ARREST [None]
